FAERS Safety Report 5338730-X (Version None)
Quarter: 2007Q2

REPORT INFORMATION
  Report Type: 
  Country: None (occurrence: None)
  Receive Date: 20070530
  Receipt Date: 20070529
  Transmission Date: 20071010
  Serious: Yes (Death, Life-Threatening, Hospitalization)
  Sender: FDA-Public Use
  Company Number: B0473043A

PATIENT
  Age: 81 Year
  Sex: Male

DRUGS (6)
  1. ALLOPURINOL [Suspect]
     Indication: GOUT
     Dosage: 200MG PER DAY
     Route: 048
     Dates: start: 20060906, end: 20060928
  2. FUROSEMIDE [Suspect]
     Dosage: 20MG PER DAY
     Route: 048
     Dates: start: 20060906, end: 20060928
  3. HEMIGOXINE NATIVELLE [Suspect]
     Route: 048
     Dates: start: 20060914
  4. COUMADIN [Suspect]
     Route: 048
     Dates: start: 20060914
  5. COLCHIMAX [Concomitant]
     Indication: GOUT
     Route: 048
     Dates: start: 20060515
  6. PERINDOPRIL ERBUMINE [Concomitant]
     Indication: HYPERTENSION
     Route: 048
     Dates: start: 20060515

REACTIONS (6)
  - DYSPHAGIA [None]
  - MUCOUS MEMBRANE DISORDER [None]
  - RENAL FAILURE ACUTE [None]
  - RENAL TUBULAR NECROSIS [None]
  - RESPIRATORY DISTRESS [None]
  - STEVENS-JOHNSON SYNDROME [None]
